FAERS Safety Report 8573467-5 (Version None)
Quarter: 2012Q3

REPORT INFORMATION
  Report Type: 
  Country: None (occurrence: None)
  Receive Date: 20120806
  Receipt Date: 20120731
  Transmission Date: 20120928
  Serious: Yes (Death)
  Sender: FDA-Public Use
  Company Number: US-ELI_LILLY_AND_COMPANY-US201207009350

PATIENT
  Sex: Female

DRUGS (3)
  1. EFFIENT [Suspect]
     Indication: STENT PLACEMENT
     Dosage: 60 MG, SINGLE
     Dates: start: 20120722, end: 20120722
  2. ASPIRIN [Concomitant]
     Indication: CORONARY ARTERY DISEASE
     Dosage: UNK
     Dates: end: 20120722
  3. ANGIOMAX [Concomitant]
     Indication: ANGIOPLASTY
     Dosage: UNK
     Route: 042
     Dates: start: 20120722, end: 20120722

REACTIONS (1)
  - ANAPHYLACTIC REACTION [None]
